FAERS Safety Report 7551777-8 (Version None)
Quarter: 2011Q2

REPORT INFORMATION
  Report Type: 
  Country: None (occurrence: None)
  Receive Date: 20110616
  Receipt Date: 20110614
  Transmission Date: 20111010
  Serious: Yes (Hospitalization)
  Sender: FDA-Public Use
  Company Number: B0721508A

PATIENT
  Sex: Female
  Weight: 55 kg

DRUGS (2)
  1. DOCETAXEL [Suspect]
     Dosage: 91MG EVERY 3 WEEKS
     Route: 042
     Dates: start: 20101129
  2. LAPATINIB [Suspect]
     Route: 048
     Dates: start: 20101129

REACTIONS (1)
  - NEUTROPENIA [None]
